FAERS Safety Report 6208674-X (Version None)
Quarter: 2009Q2

REPORT INFORMATION
  Report Type: 
  Country: None (occurrence: None)
  Receive Date: 20090522
  Receipt Date: 20090310
  Transmission Date: 20091009
  Serious: No
  Sender: FDA-Public Use
  Company Number: 8043849

PATIENT
  Age: 62 Year
  Sex: Male
  Weight: 59 kg

DRUGS (18)
  1. CIMZIA [Suspect]
     Indication: CROHN'S DISEASE
     Dosage: 400 MG SC
     Route: 058
     Dates: start: 20090228
  2. FOLIC ACID [Concomitant]
  3. PRILOSEC [Concomitant]
  4. CALCIUM W/VITAMIN D [Concomitant]
  5. LIPRAM [Concomitant]
  6. ACIDOPHILUS [Concomitant]
  7. METHADONE HCL [Concomitant]
  8. VITAMIN B-12 [Concomitant]
  9. FORTICAL [Concomitant]
  10. PREDNISONE [Concomitant]
  11. ATENOLOL [Concomitant]
  12. TRICOR [Concomitant]
  13. VICODIN [Concomitant]
  14. AMLODIPINE BESYLATE [Concomitant]
  15. TEMAZEPAM [Concomitant]
  16. ANUCORT-HC [Concomitant]
  17. OXYTOCIN [Concomitant]
  18. ISOSORBIDE MONONITRATE [Concomitant]

REACTIONS (2)
  - ARTHRALGIA [None]
  - RASH [None]
